FAERS Safety Report 7822056-6 (Version None)
Quarter: 2011Q4

REPORT INFORMATION
  Report Type: 
  Country: None (occurrence: None)
  Receive Date: 20111018
  Receipt Date: 20111012
  Transmission Date: 20120403
  Serious: Yes (Life-Threatening, Hospitalization)
  Sender: FDA-Public Use
  Company Number: PHHY2011JP67217

PATIENT
  Age: 72 Year
  Sex: Female
  Weight: 40 kg

DRUGS (4)
  1. FLUCONAZOLE [Suspect]
     Dates: start: 20110706, end: 20110721
  2. SULFAMETHOXAZOLE [Suspect]
     Dates: start: 20110706, end: 20110721
  3. TASIGNA [Suspect]
     Indication: CHRONIC MYELOID LEUKAEMIA
     Dosage: 150 MG DAILY
     Dates: start: 20110506, end: 20110617
  4. RABEPRAZOLE SODIUM [Suspect]
     Dates: start: 20110706, end: 20110721

REACTIONS (2)
  - PANCYTOPENIA [None]
  - SEPSIS [None]
